FAERS Safety Report 5505727-6 (Version None)
Quarter: 2007Q4

REPORT INFORMATION
  Report Type: 
  Country: None (occurrence: None)
  Receive Date: 20071102
  Receipt Date: 20071025
  Transmission Date: 20080405
  Serious: Yes (Other)
  Sender: FDA-Public Use
  Company Number: US-SANOFI-SYNTHELABO-A03200706172

PATIENT
  Age: 51 Year
  Sex: Male

DRUGS (1)
  1. AMBIEN [Suspect]
     Indication: INSOMNIA
     Dosage: TOOK ^40 MM^ OF ZOLPIDEM
     Route: 048

REACTIONS (4)
  - AMNESIA [None]
  - AUTOMATISM [None]
  - IMPAIRED DRIVING ABILITY [None]
  - SOMNAMBULISM [None]
